FAERS Safety Report 9948711 (Version 1)
Quarter: 2014Q1

REPORT INFORMATION
  Report Type: Spontaneous
  Country: GB (occurrence: GB)
  Receive Date: 20140304
  Receipt Date: 20140304
  Transmission Date: 20141002
  Serious: Yes (Other)
  Sender: FDA-Public Use
  Company Number: GB-JNJFOC-20140217718

PATIENT
  Age: 24 Year
  Sex: Female

DRUGS (4)
  1. IBUPROFEN [Suspect]
     Indication: TOOTHACHE
     Route: 048
     Dates: start: 20140217
  2. PARACETAMOL [Concomitant]
     Indication: PRODUCT USED FOR UNKNOWN INDICATION
     Route: 065
  3. ORAJEL [Concomitant]
     Indication: PRODUCT USED FOR UNKNOWN INDICATION
     Route: 065
  4. AMOXICILLIN [Concomitant]
     Indication: TOOTH INFECTION
     Route: 065
     Dates: start: 20140214

REACTIONS (2)
  - Hypoaesthesia [Recovered/Resolved with Sequelae]
  - Hypoaesthesia oral [Recovered/Resolved with Sequelae]
